FAERS Safety Report 9637016 (Version 2)
Quarter: 2014Q3

REPORT INFORMATION
  Report Type: Spontaneous
  Country: CA (occurrence: CA)
  Receive Date: 20131022
  Receipt Date: 20140714
  Transmission Date: 20150326
  Serious: Yes (Disabling)
  Sender: FDA-Public Use
  Company Number: CA-ROCHE-1288167

PATIENT
  Age: 35 Year
  Sex: Female

DRUGS (30)
  1. RITUXAN [Suspect]
     Active Substance: RITUXIMAB
     Dosage: DOSE: 2.74 MG/ML
     Route: 042
  2. DOXORUBICIN HYDROCHLORIDE. [Suspect]
     Active Substance: DOXORUBICIN HYDROCHLORIDE
     Indication: PRODUCT USED FOR UNKNOWN INDICATION
     Dosage: THERAPY DURATION: 43 DAYS
     Route: 042
  3. NAPROXEN. [Concomitant]
     Active Substance: NAPROXEN
  4. RESTORALAX [Concomitant]
     Dosage: POWDER FOR SOLUTION ORAL
     Route: 065
  5. HYDROXYZINE HYDROCHLORIDE. [Concomitant]
     Active Substance: HYDROXYZINE HYDROCHLORIDE
     Dosage: INJECTION, USP-LIQUID INTRAMUSCULAR
     Route: 065
  6. RITUXAN [Suspect]
     Active Substance: RITUXIMAB
     Dosage: SOLUTION INTRAVENOUS
     Route: 042
  7. VINCRISTINE SULFATE. [Suspect]
     Active Substance: VINCRISTINE SULFATE
     Indication: PRODUCT USED FOR UNKNOWN INDICATION
     Dosage: INJECTION USP, THERAPY DURATION: 43 DAYS
     Route: 042
  8. COLACE [Concomitant]
     Active Substance: DOCUSATE SODIUM
  9. LIDOCAINE. [Concomitant]
     Active Substance: LIDOCAINE
  10. PANTOPRAZOLE [Concomitant]
     Active Substance: PANTOPRAZOLE SODIUM
  11. MICONAZOLE [Concomitant]
     Active Substance: MICONAZOLE
  12. TRAMADOL HYDROCHLORIDE. [Concomitant]
     Active Substance: TRAMADOL HYDROCHLORIDE
  13. PREPARATION H CREAM [Concomitant]
     Active Substance: MINERAL OIL\PETROLATUM\PHENYLEPHRINE HYDROCHLORIDE\SHARK LIVER OIL
  14. BENZYDAMINE [Concomitant]
     Active Substance: BENZYDAMINE
     Dosage: SOLUTION BUCCAL
     Route: 065
  15. RITUXAN [Suspect]
     Active Substance: RITUXIMAB
     Indication: PRODUCT USED FOR UNKNOWN INDICATION
     Dosage: 4 MG/ML
     Route: 042
  16. ACETAMINOPHEN. [Concomitant]
     Active Substance: ACETAMINOPHEN
  17. MORPHINE SULFATE. [Concomitant]
     Active Substance: MORPHINE SULFATE
  18. PREPARATION H SUPPOSITORIES [Concomitant]
     Route: 065
  19. SHARK OIL [Concomitant]
  20. RITUXAN [Suspect]
     Active Substance: RITUXIMAB
     Dosage: THERAPY DURATION: 43 DAYS, SOLUTION INTRAVENOUS
     Route: 042
  21. PREPARATION H SUPPOSITORIES [Concomitant]
     Route: 065
  22. RANITIDINE [Concomitant]
     Active Substance: RANITIDINE\RANITIDINE HYDROCHLORIDE
  23. PREDNISOLONE. [Suspect]
     Active Substance: PREDNISOLONE
     Indication: PRODUCT USED FOR UNKNOWN INDICATION
     Dosage: THERAPY DURATION: 43 DAYS
     Route: 048
  24. DROSPIRENONE/ESTRADIOL [Concomitant]
     Active Substance: DROSPIRENONE\ESTRADIOL
     Route: 065
  25. CYCLOPHOSPHAMIDE. [Suspect]
     Active Substance: CYCLOPHOSPHAMIDE
     Indication: PRODUCT USED FOR UNKNOWN INDICATION
     Dosage: POWDER FOR SOLUTION INTRAVENOUS AND THERAPY DURATION: 43 DAYS
     Route: 042
  26. CODEINE [Concomitant]
     Active Substance: CODEINE
  27. SENOKOT [Concomitant]
     Active Substance: SENNOSIDES
  28. VALACYCLOVIR [Concomitant]
     Active Substance: VALACYCLOVIR HYDROCHLORIDE
  29. PREPARATION H SUPPOSITORIES [Concomitant]
     Route: 065
  30. POLYETHYLENE GLYCOL 3350. [Concomitant]
     Active Substance: POLYETHYLENE GLYCOL 3350

REACTIONS (3)
  - Oral herpes [Recovering/Resolving]
  - Stomatitis [Recovering/Resolving]
  - Condition aggravated [Recovering/Resolving]
